FAERS Safety Report 23185436 (Version 1)
Quarter: 2023Q4

REPORT INFORMATION
  Report Type: Spontaneous
  Country: US (occurrence: None)
  Receive Date: 20231114
  Receipt Date: 20231114
  Transmission Date: 20240110
  Serious: Yes (unspecified)
  Sender: FDA-Public Use
  Company Number: None

PATIENT
  Age: 10 Year
  Sex: Male
  Weight: 50.4 kg

DRUGS (4)
  1. ALBUTEROL SULFATE [Suspect]
     Active Substance: ALBUTEROL SULFATE
     Indication: Bronchitis
     Dosage: OTHER STRENGTH : PER ACT;?FREQUENCY : EVERY 6 HOURS;?
     Route: 048
     Dates: start: 20231110
  2. CEFTIN [Concomitant]
     Active Substance: CEFUROXIME AXETIL
  3. PREDNISOLONE [Concomitant]
     Active Substance: PREDNISOLONE
  4. CAPRON DM [Concomitant]
     Active Substance: DEXTROMETHORPHAN HYDROBROMIDE\PYRILAMINE MALEATE

REACTIONS (1)
  - Overdose [None]

NARRATIVE: CASE EVENT DATE: 20231114
